FAERS Safety Report 20825150 (Version 2)
Quarter: 2022Q2

REPORT INFORMATION
  Report Type: Other
  Country: CA (occurrence: None)
  Receive Date: 20220513
  Receipt Date: 20220523
  Transmission Date: 20220721
  Serious: Yes (Other)
  Sender: FDA-Public Use
  Company Number: CA-ROCHE-2951033

PATIENT
  Age: 40 Year
  Sex: Female
  Weight: 98.6 kg

DRUGS (4)
  1. OCREVUS [Suspect]
     Active Substance: OCRELIZUMAB
     Indication: Relapsing-remitting multiple sclerosis
     Dosage: 300 MG AT DAY 0 AND 14, THEN 600 MG EVERY 6 MONTH
     Route: 042
     Dates: start: 20211102
  2. GRAVOL [Concomitant]
     Active Substance: DIMENHYDRINATE
  3. BENADRYL [Concomitant]
     Active Substance: DIPHENHYDRAMINE HYDROCHLORIDE
  4. PREDNISONE [Concomitant]
     Active Substance: PREDNISONE

REACTIONS (6)
  - Trismus [Not Recovered/Not Resolved]
  - Infusion related reaction [Recovered/Resolved]
  - Post procedural infection [Recovered/Resolved]
  - Candida infection [Not Recovered/Not Resolved]
  - Pain [Unknown]
  - Joint dislocation [Unknown]

NARRATIVE: CASE EVENT DATE: 20211102
